FAERS Safety Report 20738262 (Version 1)
Quarter: 2022Q2

REPORT INFORMATION
  Report Type: Spontaneous
  Country: IN (occurrence: IN)
  Receive Date: 20220422
  Receipt Date: 20220422
  Transmission Date: 20220721
  Serious: Yes (Other)
  Sender: FDA-Public Use
  Company Number: IN-drreddys-LIT/IND/22/0149056

PATIENT
  Age: 62 Year
  Sex: Male

DRUGS (10)
  1. AMPHOTERICIN B [Suspect]
     Active Substance: AMPHOTERICIN B
     Indication: Fungal infection
     Dosage: MINIMUM INHIBITORY CONCENTRATION (MIC) OF 2 MICRO G/ML
  2. POSACONAZOLE [Suspect]
     Active Substance: POSACONAZOLE
     Indication: Fungal infection
     Dosage: MINIMUM INHIBITORY CONCENTRATION (MIC) OF 1 UG/ML
  3. VORICONAZOLE [Suspect]
     Active Substance: VORICONAZOLE
     Indication: Fungal infection
     Dosage: MINIMUM INHIBITORY CONCENTRATION (MIC) OF 0.12UG/ML
     Route: 042
  4. VORICONAZOLE [Suspect]
     Active Substance: VORICONAZOLE
  5. ITRACONAZOLE [Suspect]
     Active Substance: ITRACONAZOLE
     Indication: Fungal infection
     Dosage: MINIMUM INHIBITORY CONCENTRATION (MIC) OF 0.12UG/ML
  6. CASPOFUNGIN [Suspect]
     Active Substance: CASPOFUNGIN
     Indication: Fungal infection
     Dosage: MINIMUM INHIBITORY CONCENTRATION (MIC) OF 16UG/ML
  7. MICAFUNGIN [Suspect]
     Active Substance: MICAFUNGIN
     Indication: Fungal infection
     Dosage: MINIMUM INHIBITORY CONCENTRATION (MIC) OF 16UG/ML
  8. ANIDULAFUNGIN [Suspect]
     Active Substance: ANIDULAFUNGIN
     Indication: Fungal infection
     Dosage: MINIMUM INHIBITORY CONCENTRATION (MIC) OF 16UG/ML
  9. CEFTRIAXONE [Suspect]
     Active Substance: CEFTRIAXONE
     Indication: Fungal infection
     Route: 042
  10. VANCOMYCIN [Suspect]
     Active Substance: VANCOMYCIN
     Indication: Fungal infection
     Route: 042

REACTIONS (2)
  - Endocarditis [Unknown]
  - Drug ineffective [Unknown]
